FAERS Safety Report 7785824-5 (Version None)
Quarter: 2011Q3

REPORT INFORMATION
  Report Type: 
  Country: None (occurrence: None)
  Receive Date: 20110929
  Receipt Date: 20110922
  Transmission Date: 20111222
  Serious: Yes (Other)
  Sender: FDA-Public Use
  Company Number: US-SANOFI-AVENTIS-2011SA062731

PATIENT
  Sex: Female

DRUGS (3)
  1. SOY ISOFLAVONES [Concomitant]
  2. PREMARIN [Suspect]
     Route: 065
  3. ALLEGRA [Suspect]
     Route: 065

REACTIONS (1)
  - BREAST CANCER [None]
